FAERS Safety Report 19855736 (Version 1)
Quarter: 2021Q3

REPORT INFORMATION
  Report Type: Spontaneous
  Country: US (occurrence: US)
  Receive Date: 20210920
  Receipt Date: 20210920
  Transmission Date: 20211014
  Serious: Yes (Death)
  Sender: FDA-Public Use
  Company Number: None

PATIENT
  Age: 83 Year
  Sex: Female

DRUGS (13)
  1. ARMOUR THYROID 2GR [Concomitant]
  2. VITAMIN B COMPLEX [Concomitant]
     Active Substance: CYANOCOBALAMIN\DEXPANTHENOL\NIACINAMIDE\PYRIDOXINE HYDROCHLORIDE\RIBOFLAVIN 5^-PHOSPHATE SODIUM\THIAMINE HYDROCHLORIDE\VITAMIN B COMPLEX
  3. DEXAMETHASONE 4MG [Concomitant]
     Active Substance: DEXAMETHASONE
  4. COUMADIN [Concomitant]
     Active Substance: WARFARIN SODIUM
  5. DULOXETINE 30MG [Concomitant]
     Active Substance: DULOXETINE
  6. OMEPRAZOLE 10MG [Concomitant]
     Active Substance: OMEPRAZOLE
  7. CULTURELLE 15B [Concomitant]
  8. REVLIMID [Suspect]
     Active Substance: LENALIDOMIDE
     Indication: PLASMA CELL MYELOMA
     Route: 048
     Dates: start: 20200701, end: 20210913
  9. SINEMET [Concomitant]
     Active Substance: CARBIDOPA\LEVODOPA
  10. VITAMIN E 100IU [Concomitant]
  11. LEVEMIR [Concomitant]
     Active Substance: INSULIN DETEMIR
  12. VITAMIN C [Concomitant]
     Active Substance: ASCORBIC ACID
  13. PROLIA [Concomitant]
     Active Substance: DENOSUMAB

REACTIONS (1)
  - Death [None]

NARRATIVE: CASE EVENT DATE: 20210913
